FAERS Safety Report 10769484 (Version 1)
Quarter: 2015Q1

REPORT INFORMATION
  Report Type: Spontaneous
  Country: US (occurrence: None)
  Receive Date: 20150205
  Receipt Date: 20150205
  Transmission Date: 20150721
  Serious: Yes (Hospitalization)
  Sender: FDA-Public Use
  Company Number: None

PATIENT
  Age: 83 Year
  Sex: Female
  Weight: 80.2 kg

DRUGS (8)
  1. IMDUR [Concomitant]
     Active Substance: ISOSORBIDE MONONITRATE
  2. KLOR-CON [Concomitant]
     Active Substance: POTASSIUM CHLORIDE
  3. FOSAMAX [Concomitant]
     Active Substance: ALENDRONATE SODIUM
  4. SYNTHROID [Concomitant]
     Active Substance: LEVOTHYROXINE SODIUM
  5. ZOCOR [Concomitant]
     Active Substance: SIMVASTATIN
  6. ALTACE [Concomitant]
     Active Substance: RAMIPRIL
  7. LOPRESSOR [Concomitant]
     Active Substance: METOPROLOL TARTRATE
  8. LANTUS [Suspect]
     Active Substance: INSULIN GLARGINE
     Indication: DIABETES MELLITUS
     Dosage: NIGHTLY
     Route: 058

REACTIONS (6)
  - Feeding disorder [None]
  - Fall [None]
  - Urinary tract infection [None]
  - Fracture [None]
  - Hypoglycaemia [None]
  - Pain [None]

NARRATIVE: CASE EVENT DATE: 20141207
